FAERS Safety Report 9304955 (Version 1)
Quarter: 2013Q2

REPORT INFORMATION
  Report Type: Spontaneous
  Country: US (occurrence: None)
  Receive Date: 20130521
  Receipt Date: 20130521
  Transmission Date: 20140414
  Serious: Yes (Hospitalization, Disabling, Other)
  Sender: FDA-Public Use
  Company Number: None

PATIENT
  Age: 49 Year
  Sex: Female
  Weight: 84.37 kg

DRUGS (1)
  1. TOPAMAX [Suspect]
     Indication: BACK PAIN
     Dosage: 25 MG DAILY - WEEK, 40 MG WEEK TWO PO
     Route: 048
     Dates: start: 20130207, end: 20130223

REACTIONS (3)
  - Dysgeusia [None]
  - Dysarthria [None]
  - Hemiparesis [None]
